FAERS Safety Report 7400158-6 (Version None)
Quarter: 2011Q2

REPORT INFORMATION
  Report Type: 
  Country: None (occurrence: None)
  Receive Date: 20110405
  Receipt Date: 20110405
  Transmission Date: 20111010
  Serious: Yes (Other)
  Sender: FDA-Public Use
  Company Number: None

PATIENT
  Age: 61 Year
  Sex: Female
  Weight: 88.905 kg

DRUGS (1)
  1. SYNTHROID [Suspect]
     Indication: AUTOIMMUNE THYROIDITIS
     Dosage: 1 PILL 1 TIME PER DAY PO
     Route: 048
     Dates: start: 20101215, end: 20110315

REACTIONS (14)
  - PAIN [None]
  - DECREASED ACTIVITY [None]
  - FEAR [None]
  - FEELING ABNORMAL [None]
  - BLEPHAROSPASM [None]
  - AORTIC DISSECTION [None]
  - WEIGHT INCREASED [None]
  - GAIT DISTURBANCE [None]
  - ARRHYTHMIA [None]
  - ALOPECIA [None]
  - INCORRECT DOSE ADMINISTERED [None]
  - PRODUCT QUALITY ISSUE [None]
  - ATRIAL FIBRILLATION [None]
  - YAWNING [None]
